FAERS Safety Report 25410142 (Version 1)
Quarter: 2025Q2

REPORT INFORMATION
  Report Type: Spontaneous
  Country: US (occurrence: US)
  Receive Date: 20250607
  Receipt Date: 20250607
  Transmission Date: 20250717
  Serious: Yes (Other)
  Sender: COREPHARMA LLC
  Company Number: US-CorePharma LLC-2178208

PATIENT

DRUGS (2)
  1. LISINOPRIL [Suspect]
     Active Substance: LISINOPRIL
     Indication: Blood pressure measurement
  2. METOPROLOL [Suspect]
     Active Substance: METOPROLOL

REACTIONS (2)
  - Syncope [Unknown]
  - Blood pressure decreased [Unknown]
